FAERS Safety Report 9304188 (Version 2)
Quarter: 2013Q2

REPORT INFORMATION
  Report Type: Report from Study
  Country: US (occurrence: US)
  Receive Date: 20130522
  Receipt Date: 20130610
  Transmission Date: 20140414
  Serious: Yes (Hospitalization)
  Sender: FDA-Public Use
  Company Number: US-ACTELION-A-US2013-83390

PATIENT
  Age: 76 Year
  Sex: Female

DRUGS (1)
  1. TRACLEER [Suspect]
     Indication: PULMONARY ARTERIAL HYPERTENSION
     Dosage: UNK
     Route: 048

REACTIONS (8)
  - Sepsis [Unknown]
  - Renal impairment [Unknown]
  - Cystitis [Unknown]
  - Atrial fibrillation [Recovered/Resolved]
  - Cardioversion [Unknown]
  - Unresponsive to stimuli [Unknown]
  - Drug dose omission [Unknown]
  - Fall [Unknown]
